FAERS Safety Report 12647207 (Version 1)
Quarter: 2016Q3

REPORT INFORMATION
  Report Type: Spontaneous
  Country: US (occurrence: None)
  Receive Date: 20160811
  Receipt Date: 20160811
  Transmission Date: 20161109
  Serious: Yes (Other)
  Sender: FDA-Public Use
  Company Number: None

PATIENT
  Age: 30 Year
  Sex: Female
  Weight: 55.79 kg

DRUGS (7)
  1. SALONPAS PAIN RELIEF [Suspect]
     Active Substance: MENTHOL\METHYL SALICYLATE
     Indication: MUSCULOSKELETAL PAIN
     Dosage: 1 PATCH (ES) ONE TIME USED APPLIED AS MEDICATED PATCH TO SKIN
     Dates: start: 20160809
  2. CLINDAMYCIN GEL [Concomitant]
  3. IRON [Concomitant]
     Active Substance: IRON
  4. ORTHO TRI CYCLEN LO [Concomitant]
     Active Substance: ETHINYL ESTRADIOL\NORGESTIMATE
  5. SALONPAS PAIN RELIEF [Suspect]
     Active Substance: MENTHOL\METHYL SALICYLATE
     Indication: NECK PAIN
     Dosage: 1 PATCH (ES) ONE TIME USED APPLIED AS MEDICATED PATCH TO SKIN
     Dates: start: 20160809
  6. MULTI-VITAMIN [Concomitant]
     Active Substance: .ALPHA.-TOCOPHEROL ACETATE, DL-\ASCORBIC ACID\CYANOCOBALAMIN\FLUORIDE ION\FOLIC ACID\NIACIN\PYRIDOXINE\RIBOFLAVIN\THIAMINE\VITAMIN A\VITAMIN D
  7. NIACIN. [Concomitant]
     Active Substance: NIACIN

REACTIONS (2)
  - Application site pain [None]
  - Application site warmth [None]

NARRATIVE: CASE EVENT DATE: 20160809
